FAERS Safety Report 4413865-4 (Version None)
Quarter: 2004Q3

REPORT INFORMATION
  Report Type: 
  Country: None (occurrence: None)
  Receive Date: 20040802
  Receipt Date: 20040802
  Transmission Date: 20050211
  Serious: Yes (Hospitalization)
  Sender: FDA-Public Use
  Company Number: None

PATIENT
  Sex: Male
  Weight: 87.5442 kg

DRUGS (6)
  1. METHACHOLINE CHLORIDE / METHAPHARM [Suspect]
     Dosage: 0.025 - 10MG/ML VIA INHALATION
     Route: 055
     Dates: start: 20040625
  2. PRAVACHOL [Concomitant]
  3. ATENOLOL [Concomitant]
  4. NIASPAN [Concomitant]
  5. ASPIRIN [Concomitant]
  6. COZAAR [Concomitant]

REACTIONS (3)
  - CIRCULATORY COLLAPSE [None]
  - COUGH [None]
  - DYSPNOEA [None]
